FAERS Safety Report 4795358-8 (Version None)
Quarter: 2005Q4

REPORT INFORMATION
  Report Type: 
  Country: None (occurrence: None)
  Receive Date: 20051007
  Receipt Date: 20051007
  Transmission Date: 20060501
  Serious: Yes (Other)
  Sender: FDA-Public Use
  Company Number: None

PATIENT
  Age: 49 Year
  Sex: Male

DRUGS (1)
  1. CAPTOPRIL [Suspect]
     Dosage: 25MG DAILY
     Dates: start: 20050811, end: 20050825

REACTIONS (1)
  - HYPOAESTHESIA [None]
